FAERS Safety Report 6649072-4 (Version None)
Quarter: 2010Q1

REPORT INFORMATION
  Report Type: 
  Country: None (occurrence: None)
  Receive Date: 20100324
  Receipt Date: 20100310
  Transmission Date: 20100710
  Serious: Yes (Hospitalization)
  Sender: FDA-Public Use
  Company Number: US-CELGENEUS-163-21880-10031022

PATIENT
  Sex: Male

DRUGS (4)
  1. REVLIMID [Suspect]
     Indication: MULTIPLE MYELOMA
     Route: 048
     Dates: start: 20090501
  2. REVLIMID [Suspect]
     Route: 048
     Dates: start: 20081001
  3. REVLIMID [Suspect]
     Route: 048
     Dates: start: 20071001
  4. REVLIMID [Suspect]
     Route: 048
     Dates: start: 20100201

REACTIONS (3)
  - ANAEMIA [None]
  - HYPOTENSION [None]
  - MUSCULOSKELETAL STIFFNESS [None]
